FAERS Safety Report 16490628 (Version 1)
Quarter: 2019Q3

REPORT INFORMATION
  Report Type: Spontaneous
  Country: US (occurrence: US)
  Receive Date: 20190627
  Receipt Date: 20190627
  Transmission Date: 20191004
  Serious: Yes (Death)
  Sender: FDA-Public Use
  Company Number: None

PATIENT
  Sex: Male

DRUGS (3)
  1. FLOMAX, BACLOFEN, ASPIRIN, OCREVUS, GLEEVEC [Concomitant]
  2. DALFAMPRIDINE. [Suspect]
     Active Substance: DALFAMPRIDINE
     Indication: MULTIPLE SCLEROSIS
     Route: 048
     Dates: start: 20190119
  3. ZOCOR, K-TAB, OXYBUTININ, NEURONTIN [Concomitant]

REACTIONS (1)
  - Death [None]
